FAERS Safety Report 19356604 (Version 1)
Quarter: 2021Q2

REPORT INFORMATION
  Report Type: Spontaneous
  Country: BE (occurrence: BE)
  Receive Date: 20210601
  Receipt Date: 20210601
  Transmission Date: 20210717
  Serious: Yes (Other)
  Sender: FDA-Public Use
  Company Number: BE-LUPIN PHARMACEUTICALS INC.-2021-08212

PATIENT
  Age: 26 Year
  Sex: Female

DRUGS (3)
  1. OXYTOCIN. [Suspect]
     Active Substance: OXYTOCIN
     Indication: UTERINE ATONY
     Dosage: UNK
     Route: 065
  2. CARBOPROST [Suspect]
     Active Substance: CARBOPROST
     Indication: UTERINE ATONY
     Dosage: 25 MILLIGRAM, INTRAMYOMETRIAL
     Route: 030
  3. METHYLERGONOVINE [Suspect]
     Active Substance: METHYLERGONOVINE
     Indication: UTERINE ATONY
     Dosage: 0.2 MILLIGRAM
     Route: 065

REACTIONS (1)
  - Drug ineffective [Unknown]
